FAERS Safety Report 6153295-0 (Version None)
Quarter: 2009Q2

REPORT INFORMATION
  Report Type: 
  Country: None (occurrence: None)
  Receive Date: 20090413
  Receipt Date: 20090403
  Transmission Date: 20091009
  Serious: Yes (Hospitalization, Other)
  Sender: FDA-Public Use
  Company Number: PHHY2009AU12719

PATIENT
  Sex: Female

DRUGS (1)
  1. CLOZARIL [Suspect]
     Indication: SCHIZOPHRENIA, PARANOID TYPE
     Dosage: 900 MG
     Dates: start: 20020813

REACTIONS (4)
  - CHEST PAIN [None]
  - ECHOCARDIOGRAM ABNORMAL [None]
  - PULMONARY EMBOLISM [None]
  - SCHIZOPHRENIA [None]
